FAERS Safety Report 15757152 (Version 2)
Quarter: 2025Q2

REPORT INFORMATION
  Report Type: Spontaneous
  Country: ES (occurrence: ES)
  Receive Date: 20181224
  Receipt Date: 20250519
  Transmission Date: 20250716
  Serious: Yes (Other)
  Sender: UCB
  Company Number: ES-UCBSA-2018055868

PATIENT

DRUGS (1)
  1. LEVETIRACETAM [Suspect]
     Active Substance: LEVETIRACETAM
     Indication: Seizure

REACTIONS (7)
  - Seizure [Unknown]
  - Mental disorder [Unknown]
  - Depression [Unknown]
  - Irritability [Unknown]
  - Adverse event [Unknown]
  - Drug intolerance [Unknown]
  - Drug ineffective [Unknown]
